FAERS Safety Report 24366310 (Version 1)
Quarter: 2024Q3

REPORT INFORMATION
  Report Type: Spontaneous
  Country: GB (occurrence: GB)
  Receive Date: 20240926
  Receipt Date: 20240926
  Transmission Date: 20241017
  Serious: Yes (Other)
  Sender: TEVA
  Company Number: GB-MHRA-TPP34151120C7250651YC1726561553341

PATIENT
  Age: 55 Year
  Sex: Female
  Weight: 89 kg

DRUGS (19)
  1. ATORVASTATIN [Suspect]
     Active Substance: ATORVASTATIN
     Indication: Blood cholesterol increased
     Route: 048
     Dates: start: 20240809
  2. SERTRALINE [Concomitant]
     Active Substance: SERTRALINE HYDROCHLORIDE
     Indication: Depressed mood
     Route: 065
     Dates: start: 20240904
  3. SOLGAR VITAMIN B2 [Concomitant]
     Indication: Ill-defined disorder
     Route: 048
     Dates: start: 20240416
  4. AMOXICILLIN\CLAVULANATE POTASSIUM [Concomitant]
     Active Substance: AMOXICILLIN\CLAVULANATE POTASSIUM
     Indication: Ill-defined disorder
     Route: 048
     Dates: start: 20240729, end: 20240805
  5. PENICILLIN V [Concomitant]
     Active Substance: PENICILLIN V
     Indication: Ill-defined disorder
     Route: 048
     Dates: start: 20240917
  6. PROPRANOLOL [Concomitant]
     Active Substance: PROPRANOLOL HYDROCHLORIDE
     Indication: Migraine
     Dosage: 1OF TO PREVENT MIGRAINE, TPP YC - PLEASE RECLASSIFY
     Route: 065
     Dates: start: 20240416
  7. PEPPERMINT OIL [Concomitant]
     Active Substance: PEPPERMINT OIL
     Indication: Ill-defined disorder
     Route: 048
     Dates: start: 20240801
  8. CROMOLYN SODIUM [Concomitant]
     Active Substance: CROMOLYN SODIUM
     Indication: Ill-defined disorder
     Route: 065
     Dates: start: 20240902
  9. AMOXICILLIN [Concomitant]
     Active Substance: AMOXICILLIN
     Indication: Infection
     Route: 048
     Dates: start: 20240715, end: 20240720
  10. NEOMYCIN SULFATE [Concomitant]
     Active Substance: NEOMYCIN SULFATE
     Indication: Ill-defined disorder
     Dosage: APPLY DAILY
     Route: 061
     Dates: start: 20240904
  11. BISACODYL [Concomitant]
     Active Substance: BISACODYL
     Indication: Constipation
     Dosage: AT NIGHT
     Route: 065
     Dates: start: 20240416
  12. COTRIMOXAZOLE [Concomitant]
     Active Substance: SULFAMETHOXAZOLE\TRIMETHOPRIM
     Indication: Lower respiratory tract infection
     Route: 048
     Dates: start: 20240701, end: 20240715
  13. CALCIUM CARBONATE\CHOLECALCIFEROL [Concomitant]
     Active Substance: CALCIUM CARBONATE\CHOLECALCIFEROL
     Indication: Ill-defined disorder
     Route: 048
     Dates: start: 20240416
  14. RANITIDINE HYDROCHLORIDE [Concomitant]
     Active Substance: RANITIDINE HYDROCHLORIDE
     Indication: Ill-defined disorder
     Route: 048
     Dates: start: 20240729, end: 20240810
  15. FEXOFENADINE [Concomitant]
     Active Substance: FEXOFENADINE HYDROCHLORIDE
     Indication: Ill-defined disorder
     Route: 048
     Dates: start: 20240715
  16. MIRTAZAPINE [Concomitant]
     Active Substance: MIRTAZAPINE
     Indication: Depressed mood
     Route: 048
     Dates: start: 20240416, end: 20240904
  17. EYEAZE [Concomitant]
     Indication: Ill-defined disorder
     Dosage: USE AS DIRECTED NB REPLACES XAILIN  DROPS, TPP YC - PLEASE RECLASSIFY
     Route: 065
     Dates: start: 20240416
  18. DICLOFENAC DIETHYLAMINE [Concomitant]
     Active Substance: DICLOFENAC DIETHYLAMINE
     Indication: Ill-defined disorder
     Route: 061
     Dates: start: 20240701, end: 20240731
  19. PROGRAF [Concomitant]
     Active Substance: TACROLIMUS
     Indication: Transplant rejection
     Route: 048
     Dates: start: 20240416

REACTIONS (3)
  - Myalgia [Recovered/Resolved]
  - Rhabdomyolysis [Recovered/Resolved]
  - Chest pain [Recovered/Resolved]

NARRATIVE: CASE EVENT DATE: 20240917
